FAERS Safety Report 5166662-9 (Version None)
Quarter: 2006Q4

REPORT INFORMATION
  Report Type: 
  Country: None (occurrence: None)
  Receive Date: 20061130
  Receipt Date: 20061130
  Transmission Date: 20070319
  Serious: Yes (Other)
  Sender: FDA-Public Use
  Company Number: None

PATIENT
  Age: 24 Year
  Sex: Male

DRUGS (4)
  1. CLOZAPINE [Suspect]
     Indication: SCHIZOPHRENIA
     Dosage: 300 MG; BID; PO
     Route: 048
  2. HALDOL [Concomitant]
  3. COGENTIN [Concomitant]
  4. PROZAC [Concomitant]

REACTIONS (1)
  - GRAND MAL CONVULSION [None]
